FAERS Safety Report 19946648 (Version 1)
Quarter: 2021Q4

REPORT INFORMATION
  Report Type: Other
  Country: CA (occurrence: CA)
  Receive Date: 20211013
  Receipt Date: 20211013
  Transmission Date: 20220303
  Serious: Yes (Other)
  Sender: FDA-Public Use
  Company Number: CA-CELLTRION INC.-2021CA013669

PATIENT

DRUGS (2)
  1. RITUXIMAB [Suspect]
     Active Substance: RITUXIMAB
     Indication: Warm type haemolytic anaemia
     Route: 042
  2. PREDNISONE [Concomitant]
     Active Substance: PREDNISONE
     Dosage: 60 MILLIGRAM, 1 EVERY 1 DAY
     Route: 065

REACTIONS (5)
  - Anxiety [Unknown]
  - Asthma [Unknown]
  - Drug hypersensitivity [Unknown]
  - Hypertension [Unknown]
  - Off label use [Unknown]
